FAERS Safety Report 8111945-3 (Version None)
Quarter: 2012Q1

REPORT INFORMATION
  Report Type: 
  Country: None (occurrence: None)
  Receive Date: 20120203
  Receipt Date: 20110726
  Transmission Date: 20120608
  Serious: No
  Sender: FDA-Public Use
  Company Number: US-GLAXOSMITHKLINE-A0938365A

PATIENT
  Age: 59 Year
  Sex: Male

DRUGS (2)
  1. ARIXTRA [Suspect]
     Indication: PORTAL VEIN THROMBOSIS
     Dosage: 7.5MG PER DAY
     Route: 058
     Dates: start: 20110526
  2. NO CONCURRENT MEDICATION [Concomitant]

REACTIONS (4)
  - PRODUCT QUALITY ISSUE [None]
  - INJECTION SITE REACTION [None]
  - INJECTION SITE PAIN [None]
  - NEEDLE ISSUE [None]
